FAERS Safety Report 16985737 (Version 1)
Quarter: 2019Q4

REPORT INFORMATION
  Report Type: Spontaneous
  Country: US (occurrence: US)
  Receive Date: 20191031
  Receipt Date: 20191031
  Transmission Date: 20200122
  Serious: Yes (Hospitalization)
  Sender: FDA-Public Use
  Company Number: None

PATIENT
  Sex: Male

DRUGS (11)
  1. DEFERASIROX. [Suspect]
     Active Substance: DEFERASIROX
     Indication: BONE CANCER
     Route: 048
     Dates: start: 20190502
  2. CALCIUM [Concomitant]
     Active Substance: CALCIUM
  3. DUTASTERIDE. [Concomitant]
     Active Substance: DUTASTERIDE
  4. SERTRALINE [Concomitant]
     Active Substance: SERTRALINE HYDROCHLORIDE
  5. EXJADE [Concomitant]
     Active Substance: DEFERASIROX
  6. DEFERASIROX. [Suspect]
     Active Substance: DEFERASIROX
     Indication: EXTERNAL EAR NEOPLASM MALIGNANT
     Route: 048
     Dates: start: 20190502
  7. AMLODIPINE [Concomitant]
     Active Substance: AMLODIPINE BESYLATE
  8. STOOL SOFTNR [Concomitant]
  9. FOLIC ACID. [Concomitant]
     Active Substance: FOLIC ACID
  10. OMEPRAZOLE. [Concomitant]
     Active Substance: OMEPRAZOLE
  11. ZANTAC [Concomitant]
     Active Substance: RANITIDINE HYDROCHLORIDE

REACTIONS (1)
  - Joint dislocation [None]
